FAERS Safety Report 5511729-6 (Version None)
Quarter: 2007Q4

REPORT INFORMATION
  Report Type: 
  Country: None (occurrence: None)
  Receive Date: 20071109
  Receipt Date: 20071107
  Transmission Date: 20080405
  Serious: Yes (Other)
  Sender: FDA-Public Use
  Company Number: US-GILEAD-2007-0014299

PATIENT
  Sex: Female
  Weight: 68.554 kg

DRUGS (10)
  1. LETAIRIS [Suspect]
     Indication: PULMONARY HYPERTENSION
     Route: 048
     Dates: start: 20070717, end: 20071001
  2. RESTASIS [Concomitant]
     Indication: RESTLESS LEGS SYNDROME
  3. LASIX [Concomitant]
     Indication: OEDEMA
     Route: 048
  4. ZETIA [Concomitant]
     Indication: BLOOD CHOLESTEROL INCREASED
  5. LEXAPRO [Concomitant]
  6. METHIMAZOLE [Concomitant]
     Dates: start: 20070901
  7. PERCOCET [Concomitant]
  8. FLOLAN [Concomitant]
     Route: 042
  9. MAGNESIUM OXIDE [Concomitant]
     Indication: HYPOMAGNESAEMIA
     Route: 048
  10. POTASSIUM CHLORIDE [Concomitant]
     Route: 048

REACTIONS (2)
  - ARTHRALGIA [None]
  - OEDEMA [None]
